FAERS Safety Report 9054941 (Version 2)
Quarter: 2013Q1

REPORT INFORMATION
  Report Type: Spontaneous
  Country: DE (occurrence: DE)
  Receive Date: 20130208
  Receipt Date: 20130228
  Transmission Date: 20140127
  Serious: Yes (Hospitalization)
  Sender: FDA-Public Use
  Company Number: DE-ROCHE-1189422

PATIENT
  Sex: Female
  Weight: 48 kg

DRUGS (4)
  1. PEGASYS [Suspect]
     Indication: HEPATITIS C
     Route: 065
     Dates: start: 2011
  2. PEGASYS [Suspect]
     Route: 065
     Dates: start: 2012
  3. RIBAVIRIN [Suspect]
     Indication: HEPATITIS C
     Route: 065
     Dates: start: 2011
  4. RIBAVIRIN [Suspect]
     Route: 065
     Dates: start: 2012

REACTIONS (5)
  - Cardiomyopathy [Not Recovered/Not Resolved]
  - Cardiac failure [Recovering/Resolving]
  - Pleural effusion [Recovering/Resolving]
  - Cardiac failure [Not Recovered/Not Resolved]
  - Hepatitis C [Unknown]
